FAERS Safety Report 14541686 (Version 1)
Quarter: 2018Q1

REPORT INFORMATION
  Report Type: Spontaneous
  Country: US (occurrence: US)
  Receive Date: 20180216
  Receipt Date: 20180216
  Transmission Date: 20180509
  Serious: Yes (Other)
  Sender: FDA-Public Use
  Company Number: US-MYLANLABS-2018M1011309

PATIENT
  Age: 33 Year
  Sex: Male

DRUGS (1)
  1. EPINEPHRINE. [Suspect]
     Active Substance: EPINEPHRINE
     Indication: ANAPHYLACTIC REACTION
     Dosage: 0.3 MG, UNK
     Route: 030
     Dates: start: 20180119

REACTIONS (5)
  - Poor quality device used [Unknown]
  - Needle issue [Unknown]
  - No adverse event [Unknown]
  - Device ineffective [Recovered/Resolved]
  - Expired device used [Unknown]

NARRATIVE: CASE EVENT DATE: 20180119
